FAERS Safety Report 10572548 (Version 1)
Quarter: 2014Q4

REPORT INFORMATION
  Report Type: Spontaneous
  Country: DE (occurrence: DE)
  Receive Date: 20141110
  Receipt Date: 20141110
  Transmission Date: 20150529
  Serious: Yes (Other)
  Sender: FDA-Public Use
  Company Number: DE-BRISTOL-MYERS SQUIBB COMPANY-21579495

PATIENT
  Age: 84 Year
  Sex: Male

DRUGS (1)
  1. IPILIMUMAB [Suspect]
     Active Substance: IPILIMUMAB
     Indication: MALIGNANT MELANOMA
     Dosage: NOV-2011 TO FEB-2012: 4 CYCLES?JUN-2014: CYCLE 1 OF RE-INDUCTION
     Dates: start: 201111

REACTIONS (3)
  - Colitis [Unknown]
  - Skin toxicity [Unknown]
  - Malignant neoplasm progression [Unknown]

NARRATIVE: CASE EVENT DATE: 201406
